FAERS Safety Report 7251278-0 (Version None)
Quarter: 2011Q1

REPORT INFORMATION
  Report Type: 
  Country: None (occurrence: None)
  Receive Date: 20110119
  Receipt Date: 20110103
  Transmission Date: 20110831
  Serious: Yes (Other)
  Sender: FDA-Public Use
  Company Number: 2011P1003721

PATIENT
  Age: 74 Year
  Sex: Female
  Weight: 108.8633 kg

DRUGS (4)
  1. PREV MEDS [Concomitant]
  2. LEVOTHYROXINE [Concomitant]
  3. WARFARIN SODIUM [Suspect]
     Indication: THROMBOSIS
     Dosage: 5.5 MG;QD;PO
     Route: 048
     Dates: start: 19760101
  4. ATENOLOL [Concomitant]

REACTIONS (3)
  - SKIN DISCOLOURATION [None]
  - PSORIASIS [None]
  - GANGRENE [None]
